FAERS Safety Report 5534484-2 (Version None)
Quarter: 2007Q4

REPORT INFORMATION
  Report Type: 
  Country: None (occurrence: None)
  Receive Date: 20071119
  Receipt Date: 20070725
  Transmission Date: 20080405
  Serious: No
  Sender: FDA-Public Use
  Company Number: TPA2007A01569

PATIENT
  Age: 42 Year
  Sex: Male
  Weight: 72.5755 kg

DRUGS (1)
  1. ROZEREM [Suspect]
     Indication: INSOMNIA
     Dosage: 8 MG, QHS AS REQUIRED, PER ORAL
     Route: 048
     Dates: start: 20061225, end: 20070725

REACTIONS (6)
  - ABNORMAL DREAMS [None]
  - HYPERHIDROSIS [None]
  - INITIAL INSOMNIA [None]
  - MIDDLE INSOMNIA [None]
  - NIGHTMARE [None]
  - SOMNOLENCE [None]
